FAERS Safety Report 9535023 (Version 1)
Quarter: 2013Q3

REPORT INFORMATION
  Report Type: Spontaneous
  Country: FR (occurrence: FR)
  Receive Date: 20130918
  Receipt Date: 20130918
  Transmission Date: 20140515
  Serious: Yes (Death)
  Sender: FDA-Public Use
  Company Number: FR-PFIZER INC-2013266259

PATIENT
  Age: 41 Year
  Sex: Male

DRUGS (1)
  1. CRIZOTINIB [Suspect]
     Indication: NEOPLASM MALIGNANT
     Dosage: UNK
     Dates: start: 20121205

REACTIONS (4)
  - Death [Fatal]
  - Dyspepsia [Unknown]
  - Disease progression [Unknown]
  - Neoplasm malignant [Unknown]
